FAERS Safety Report 20827512 (Version 10)
Quarter: 2025Q1

REPORT INFORMATION
  Report Type: Spontaneous
  Country: US (occurrence: US)
  Receive Date: 20220513
  Receipt Date: 20250221
  Transmission Date: 20250409
  Serious: Yes (Hospitalization, Other)
  Sender: PFIZER
  Company Number: US-PFIZER INC-202200661948

PATIENT
  Age: 63 Year
  Sex: Female

DRUGS (21)
  1. IBRANCE [Suspect]
     Active Substance: PALBOCICLIB
     Indication: Breast cancer female
     Dates: start: 20220427
  2. IBRANCE [Suspect]
     Active Substance: PALBOCICLIB
     Dates: start: 20220505
  3. IBRANCE [Suspect]
     Active Substance: PALBOCICLIB
     Route: 048
     Dates: start: 20220518
  4. IBRANCE [Suspect]
     Active Substance: PALBOCICLIB
     Route: 048
     Dates: start: 20220518
  5. IBRANCE [Suspect]
     Active Substance: PALBOCICLIB
     Route: 048
     Dates: start: 20220518
  6. IBRANCE [Suspect]
     Active Substance: PALBOCICLIB
     Dosage: 125 MG, DAILY
     Route: 048
     Dates: start: 20220908
  7. IBRANCE [Suspect]
     Active Substance: PALBOCICLIB
     Route: 048
     Dates: start: 20221123, end: 20230202
  8. IBRANCE [Suspect]
     Active Substance: PALBOCICLIB
     Route: 048
  9. IBRANCE [Suspect]
     Active Substance: PALBOCICLIB
     Route: 048
     Dates: end: 20241028
  10. LETROZOLE [Concomitant]
     Active Substance: LETROZOLE
  11. CYMBALTA [Concomitant]
     Active Substance: DULOXETINE HYDROCHLORIDE
  12. GABAPENTIN [Concomitant]
     Active Substance: GABAPENTIN
  13. IBUPROFEN [Concomitant]
     Active Substance: IBUPROFEN
  14. LITHIUM CARBONATE [Concomitant]
     Active Substance: LITHIUM CARBONATE
  15. BIFIDOBACTERIUM ANIMALIS LACTIS [Concomitant]
     Active Substance: BIFIDOBACTERIUM ANIMALIS LACTIS
  16. RECLAST [Concomitant]
     Active Substance: ZOLEDRONIC ACID
  17. TRAMADOL [Concomitant]
     Active Substance: TRAMADOL
  18. VITAMIN C [Concomitant]
     Active Substance: ASCORBIC ACID
  19. VRAYLAR [Concomitant]
     Active Substance: CARIPRAZINE
  20. DULOXETINE [Concomitant]
     Active Substance: DULOXETINE
  21. VITAMINS [Concomitant]
     Active Substance: VITAMINS

REACTIONS (14)
  - Pneumonia [Unknown]
  - Fall [Not Recovered/Not Resolved]
  - Kidney infection [Unknown]
  - Parkinson^s disease [Unknown]
  - Pulmonary thrombosis [Unknown]
  - Bladder disorder [Unknown]
  - Product dose omission issue [Unknown]
  - Tremor [Not Recovered/Not Resolved]
  - Nervous system disorder [Unknown]
  - Weight decreased [Unknown]
  - Vision blurred [Unknown]
  - Stomatitis [Not Recovered/Not Resolved]
  - Eating disorder [Unknown]
  - COVID-19 [Unknown]

NARRATIVE: CASE EVENT DATE: 20220101
